FAERS Safety Report 7272871-5 (Version None)
Quarter: 2011Q1

REPORT INFORMATION
  Report Type: 
  Country: None (occurrence: None)
  Receive Date: 20110128
  Receipt Date: 20110119
  Transmission Date: 20110831
  Serious: Yes (Death, Hospitalization, Other)
  Sender: FDA-Public Use
  Company Number: GB-ACCORD-004847

PATIENT
  Age: 50 Year
  Sex: Female

DRUGS (3)
  1. COMBINATIONS OF ANTINEOPLASTIC AGEN (COMBINATIONS OF ANTINEOPLASTIC AG [Suspect]
     Indication: PANCREATIC CARCINOMA
     Dosage: 80.00-MG/M2
  2. GEMCITABINE [Suspect]
     Indication: PANCREATIC CARCINOMA
     Dosage: 800.00-MG/M2
     Dates: start: 20070201
  3. PACLITAXEL [Suspect]
     Indication: PANCREATIC CARCINOMA
     Dosage: 70.00-MG/M2

REACTIONS (9)
  - SEPTIC SHOCK [None]
  - METASTASES TO LUNG [None]
  - HYPOPHAGIA [None]
  - METASTASES TO PERITONEUM [None]
  - MALAISE [None]
  - METASTASES TO LIVER [None]
  - VOMITING [None]
  - FEBRILE NEUTROPENIA [None]
  - OFF LABEL USE [None]
